FAERS Safety Report 4398619-X (Version None)
Quarter: 2004Q3

REPORT INFORMATION
  Report Type: 
  Country: None (occurrence: None)
  Receive Date: 20040715
  Receipt Date: 20040705
  Transmission Date: 20050211
  Serious: Yes (Hospitalization)
  Sender: FDA-Public Use
  Company Number: PHNR2004AU01187

PATIENT
  Age: 47 Year
  Sex: Female
  Weight: 98 kg

DRUGS (4)
  1. ESTRADIOL [Suspect]
     Dosage: 150 MG, WEEKLY
     Route: 062
     Dates: start: 20020415
  2. REDUCTIL [Suspect]
     Indication: OBESITY
     Dosage: 10 MG, QD
     Route: 048
     Dates: start: 20030208, end: 20030319
  3. PEPCIDIN [Suspect]
     Indication: OESOPHAGEAL DISORDER
     Dosage: 40 MG, QD
     Dates: start: 20011215
  4. LOSEC [Concomitant]

REACTIONS (4)
  - ANXIETY [None]
  - CHEST DISCOMFORT [None]
  - DYSPNOEA [None]
  - WEIGHT INCREASED [None]
